FAERS Safety Report 9247360 (Version 5)
Quarter: 2013Q3

REPORT INFORMATION
  Report Type: Spontaneous
  Country: BR (occurrence: BR)
  Receive Date: 20130423
  Receipt Date: 20130816
  Transmission Date: 20140515
  Serious: Yes (Hospitalization)
  Sender: FDA-Public Use
  Company Number: BR-JNJFOC-20130408988

PATIENT
  Age: 3 Month
  Sex: Female
  Weight: 4 kg

DRUGS (2)
  1. TYLENOL GOTAS [Suspect]
     Indication: PAIN
     Route: 048
     Dates: start: 20130411, end: 20130411
  2. TYLENOL GOTAS [Suspect]
     Indication: PAIN
     Dosage: 5 DROPS
     Route: 048

REACTIONS (12)
  - Hepatic enzyme abnormal [Unknown]
  - Blood test abnormal [Unknown]
  - Cold sweat [Recovered/Resolved]
  - Erythema [Recovered/Resolved]
  - Accidental overdose [Recovered/Resolved]
  - Fear [Not Recovered/Not Resolved]
  - Crying [Not Recovered/Not Resolved]
  - Product dropper issue [Unknown]
  - Asthenia [Recovered/Resolved]
  - Haematoma [Unknown]
  - Somnolence [Unknown]
  - Vomiting [Unknown]
